FAERS Safety Report 6404352-2 (Version None)
Quarter: 2009Q4

REPORT INFORMATION
  Report Type: 
  Country: None (occurrence: None)
  Receive Date: 20091013
  Receipt Date: 20091001
  Transmission Date: 20100525
  Serious: Yes (Hospitalization, Other)
  Sender: FDA-Public Use
  Company Number: 2007-01790

PATIENT
  Age: 70 Year
  Sex: Male
  Weight: 71 kg

DRUGS (28)
  1. VELCADE [Suspect]
     Indication: MULTIPLE MYELOMA
     Dosage: SEE IMAGE
     Route: 042
     Dates: start: 20070305, end: 20070315
  2. VELCADE [Suspect]
     Indication: MULTIPLE MYELOMA
     Dosage: SEE IMAGE
     Route: 042
     Dates: start: 20070326, end: 20070329
  3. VELCADE [Suspect]
     Indication: MULTIPLE MYELOMA
     Dosage: SEE IMAGE
     Route: 042
     Dates: start: 20080306, end: 20080710
  4. VELCADE [Suspect]
     Indication: MULTIPLE MYELOMA
     Dosage: SEE IMAGE
     Route: 042
     Dates: start: 20080326, end: 20080710
  5. VELCADE [Suspect]
     Indication: MULTIPLE MYELOMA
     Dosage: SEE IMAGE
     Route: 042
     Dates: start: 20081116, end: 20090305
  6. VELCADE [Suspect]
     Indication: MULTIPLE MYELOMA
     Dosage: SEE IMAGE
     Route: 042
     Dates: start: 20081116, end: 20090305
  7. VELCADE [Suspect]
     Indication: MULTIPLE MYELOMA
     Dosage: SEE IMAGE
     Route: 042
     Dates: start: 20090312, end: 20090326
  8. DEXAMETHASONE [Concomitant]
  9. LASIX [Concomitant]
  10. ALDACTONE [Concomitant]
  11. FAMOTIDINE [Concomitant]
  12. ALLOPURINOL [Concomitant]
  13. MUCOSTA (REBAMIPIDE) [Concomitant]
  14. SULFAMETHOXAZOLE AND TRIMETHOPRIM [Concomitant]
  15. ISODINE (POVIDONE-IODINE) [Concomitant]
  16. SEROTONE (AZASETRON HYDROCHLORIDE) [Concomitant]
  17. PURSENNID (SENNA LEAF) [Concomitant]
  18. NEOPHAGEN (GLYCYRRHIZINATE POTASSIUM) [Concomitant]
  19. URSO 250 [Concomitant]
  20. ACYCLOVIR [Concomitant]
  21. NEU-UP (NARTOGRASTIM) [Concomitant]
  22. RED BLOOD CELLS [Concomitant]
  23. SEROTONE (AZASETRON HYDROCHLORIDE) [Concomitant]
  24. CHLOR-TRIMETON [Concomitant]
  25. ITRACONAZOLE [Concomitant]
  26. VALTREX (VALACUCLOVIR HYDROCHLORIDE) [Concomitant]
  27. METHYCOBAL (MECOBALAMIN) [Concomitant]
  28. LOXONIN (LOXOPROFEN SODIUM) [Concomitant]

REACTIONS (6)
  - BENIGN PROSTATIC HYPERPLASIA [None]
  - DIARRHOEA [None]
  - DYSURIA [None]
  - HEPATIC FUNCTION ABNORMAL [None]
  - NEUROPATHY PERIPHERAL [None]
  - PLATELET COUNT DECREASED [None]
